FAERS Safety Report 13162228 (Version 2)
Quarter: 2017Q1

REPORT INFORMATION
  Report Type: Report from Study
  Country: HU (occurrence: HU)
  Receive Date: 20170130
  Receipt Date: 20170213
  Transmission Date: 20170428
  Serious: Yes (Other)
  Sender: FDA-Public Use
  Company Number: HU-ASTELLAS-2017US003247

PATIENT

DRUGS (3)
  1. MYCOPHENOLATE [Concomitant]
     Active Substance: MYCOPHENOLIC ACID
     Indication: IMMUNOSUPPRESSION
     Dosage: 1000 (UNITS NOT PROVIDED), ONCE DAILY
     Route: 065
     Dates: start: 20050521
  2. TACROLIMUS. [Suspect]
     Active Substance: TACROLIMUS
     Route: 065
     Dates: start: 20151222
  3. TACROLIMUS. [Suspect]
     Active Substance: TACROLIMUS
     Indication: RENAL TRANSPLANT
     Route: 065
     Dates: start: 20150403

REACTIONS (1)
  - Hypertensive crisis [Recovered/Resolved]

NARRATIVE: CASE EVENT DATE: 20160506
